FAERS Safety Report 26207153 (Version 1)
Quarter: 2025Q4

REPORT INFORMATION
  Report Type: Spontaneous
  Country: US (occurrence: US)
  Receive Date: 20251229
  Receipt Date: 20251229
  Transmission Date: 20260118
  Serious: No
  Sender: BIOGEN
  Company Number: US-BIOGEN-2096533

PATIENT
  Age: 52 Year
  Sex: Female

DRUGS (3)
  1. TYSABRI [Suspect]
     Active Substance: NATALIZUMAB
     Indication: Multiple sclerosis
     Dates: start: 20250321
  2. TYSABRI [Suspect]
     Active Substance: NATALIZUMAB
     Dates: start: 2025
  3. TYSABRI [Suspect]
     Active Substance: NATALIZUMAB

REACTIONS (3)
  - Memory impairment [Unknown]
  - Gait disturbance [Unknown]
  - Prescribed underdose [Unknown]

NARRATIVE: CASE EVENT DATE: 20250101
